FAERS Safety Report 4574437-4 (Version None)
Quarter: 2005Q1

REPORT INFORMATION
  Report Type: 
  Country: None (occurrence: None)
  Receive Date: 20050208
  Receipt Date: 19990413
  Transmission Date: 20050727
  Serious: No
  Sender: FDA-Public Use
  Company Number: US-GLAXOSMITHKLINE-A0301664A

PATIENT
  Age: 35 Year
  Sex: Female
  Weight: 51.7 kg

DRUGS (4)
  1. PAXIL [Suspect]
     Indication: DEPRESSION
     Route: 048
     Dates: start: 19990408
  2. ALPRAZOLAM [Concomitant]
     Dosage: .5MG PER DAY
     Route: 048
  3. AMOXICILLIN [Concomitant]
     Dosage: 500MG THREE TIMES PER DAY
     Route: 048
  4. KLONOPIN [Concomitant]

REACTIONS (7)
  - ANXIETY [None]
  - FATIGUE [None]
  - FEELING JITTERY [None]
  - FEELING OF RELAXATION [None]
  - MEDICATION ERROR [None]
  - NAUSEA [None]
  - SLEEP DISORDER [None]
